FAERS Safety Report 25140857 (Version 1)
Quarter: 2025Q1

REPORT INFORMATION
  Report Type: Report from Study
  Country: US (occurrence: US)
  Receive Date: 20250331
  Receipt Date: 20250331
  Transmission Date: 20250409
  Serious: Yes (Other)
  Sender: ROCHE
  Company Number: US-ROCHE-10000242709

PATIENT
  Age: 22 Year
  Sex: Female

DRUGS (2)
  1. XOLAIR PFS [Suspect]
     Active Substance: OMALIZUMAB
     Indication: Asthma
     Dosage: INJECT 225MG SUBCUTANEOUSLY EVERY 2 WEEK(S)
     Route: 058
  2. XOLAIR PFS [Suspect]
     Active Substance: OMALIZUMAB
     Indication: Hypersensitivity
     Dosage: INJECT 225MG SUBCUTANEOUSLY EVERY 2 WEEK(S)
     Route: 058

REACTIONS (1)
  - Ovarian cyst [Unknown]
